FAERS Safety Report 18641121 (Version 1)
Quarter: 2020Q4

REPORT INFORMATION
  Report Type: Spontaneous
  Country: SE (occurrence: SE)
  Receive Date: 20201221
  Receipt Date: 20201221
  Transmission Date: 20210114
  Serious: Yes (Other)
  Sender: FDA-Public Use
  Company Number: SE-TEVA-2020-SE-1859384

PATIENT
  Age: 80 Year
  Sex: Female

DRUGS (2)
  1. GABAPENTIN. [Suspect]
     Active Substance: GABAPENTIN
     Route: 065
     Dates: end: 20201110
  2. FURIX [Concomitant]

REACTIONS (1)
  - Peripheral swelling [Unknown]

NARRATIVE: CASE EVENT DATE: 202010
